FAERS Safety Report 5692935-7 (Version None)
Quarter: 2008Q2

REPORT INFORMATION
  Report Type: 
  Country: None (occurrence: None)
  Receive Date: 20080328
  Receipt Date: 20070712
  Transmission Date: 20081010
  Serious: Yes (Other)
  Sender: FDA-Public Use
  Company Number: HQWYE046916JUL07

PATIENT
  Age: 37 Year
  Sex: Female
  Weight: 59.93 kg

DRUGS (1)
  1. PROTONIX [Suspect]
     Indication: GASTRINOMA
     Dosage: 40 MG 2X PER 1 DAY, ORAL
     Route: 048
     Dates: start: 20070403, end: 20070408

REACTIONS (3)
  - DIZZINESS [None]
  - NAUSEA [None]
  - RETCHING [None]
